FAERS Safety Report 21451852 (Version 1)
Quarter: 2022Q4

REPORT INFORMATION
  Report Type: Report from Study
  Country: ES (occurrence: ES)
  Receive Date: 20221013
  Receipt Date: 20221013
  Transmission Date: 20230112
  Serious: Yes (Death)
  Sender: FDA-Public Use
  Company Number: ES-DSJP-DSU-2022-134261

PATIENT
  Sex: Female

DRUGS (8)
  1. ENHERTU [Suspect]
     Active Substance: FAM-TRASTUZUMAB DERUXTECAN-NXKI
     Indication: HER2 positive breast cancer
     Route: 065
  2. LANSOPRAZOLE [Concomitant]
     Active Substance: LANSOPRAZOLE
     Dosage: UNK
  3. METAMIZOLE [Concomitant]
     Active Substance: METAMIZOLE
  4. MORPHINE [Concomitant]
     Active Substance: MORPHINE
  5. FENTANYL [Concomitant]
     Active Substance: FENTANYL
  6. LORAZEPAM [Concomitant]
     Active Substance: LORAZEPAM
  7. DEXAMETHASONE [Concomitant]
     Active Substance: DEXAMETHASONE
  8. INSULIN NOS [Concomitant]
     Active Substance: INSULIN NOS

REACTIONS (2)
  - Death [Fatal]
  - Disease progression [Unknown]

NARRATIVE: CASE EVENT DATE: 20220929
